FAERS Safety Report 5514375-3 (Version None)
Quarter: 2007Q4

REPORT INFORMATION
  Report Type: 
  Country: None (occurrence: None)
  Receive Date: 20071113
  Receipt Date: 20070501
  Transmission Date: 20080405
  Serious: No
  Sender: FDA-Public Use
  Company Number: A0649483A

PATIENT
  Age: 84 Year
  Sex: Female

DRUGS (14)
  1. COREG [Suspect]
     Indication: LEFT VENTRICULAR DYSFUNCTION
     Dosage: 3.125MG TWICE PER DAY
     Route: 048
     Dates: start: 20040401
  2. LIPITOR [Concomitant]
  3. FOSAMAX [Concomitant]
  4. FUROSEMIDE [Concomitant]
  5. ASPIRIN [Concomitant]
  6. ALTACE [Concomitant]
  7. POTASSIUM CHLORIDE [Concomitant]
  8. PLAVIX [Concomitant]
  9. EYE DROPS [Concomitant]
  10. MULTI-VITAMIN [Concomitant]
  11. CALCIUM [Concomitant]
  12. GLUCOSAMINE [Concomitant]
  13. VITAMIN B COMPLEX CAP [Concomitant]
  14. FLAX OIL [Concomitant]

REACTIONS (1)
  - FATIGUE [None]
